FAERS Safety Report 17357995 (Version 1)
Quarter: 2020Q1

REPORT INFORMATION
  Report Type: Spontaneous
  Country: JP (occurrence: JP)
  Receive Date: 20200131
  Receipt Date: 20200131
  Transmission Date: 20200409
  Serious: Yes (Hospitalization)
  Sender: FDA-Public Use
  Company Number: JP-ELI_LILLY_AND_COMPANY-JP201912003349

PATIENT
  Age: 78 Year
  Sex: Male

DRUGS (2)
  1. PACLITAXEL. [Suspect]
     Active Substance: PACLITAXEL
     Indication: GLOTTIS CARCINOMA
     Dosage: 80 MG/M2, WEEKLY (1/W)
     Route: 041
     Dates: start: 20191002
  2. ERBITUX [Suspect]
     Active Substance: CETUXIMAB
     Indication: GLOTTIS CARCINOMA
     Dosage: 250 MG/M2, WEEKLY (1/W)
     Route: 041
     Dates: start: 20191002

REACTIONS (2)
  - Off label use [Unknown]
  - Pneumothorax [Recovered/Resolved]

NARRATIVE: CASE EVENT DATE: 20191118
